FAERS Safety Report 10268798 (Version 2)
Quarter: 2014Q3

REPORT INFORMATION
  Report Type: Spontaneous
  Country: AR (occurrence: AR)
  Receive Date: 20140630
  Receipt Date: 20140731
  Transmission Date: 20150326
  Serious: Yes (Other)
  Sender: FDA-Public Use
  Company Number: CHPA2014AR008773

PATIENT
  Age: 52 Year
  Sex: Female

DRUGS (2)
  1. NICOTINELL [Suspect]
     Active Substance: NICOTINE
     Dosage: 10 DF, DAILY
  2. NICOTINELL [Suspect]
     Active Substance: NICOTINE
     Indication: SMOKING CESSATION THERAPY
     Dosage: 10 DF, DAILY
     Route: 048
     Dates: start: 2010

REACTIONS (3)
  - Anxiety [Recovered/Resolved]
  - Feeling of despair [Recovered/Resolved]
  - Agitation [Recovered/Resolved]

NARRATIVE: CASE EVENT DATE: 20140614
